FAERS Safety Report 20060750 (Version 1)
Quarter: 2021Q4

REPORT INFORMATION
  Report Type: Report from Study
  Country: FR (occurrence: None)
  Receive Date: 20211112
  Receipt Date: 20211112
  Transmission Date: 20220303
  Serious: Yes (Other)
  Sender: FDA-Public Use
  Company Number: FR-Merck Healthcare KGaA-9278040

PATIENT
  Age: 32 Year
  Sex: Female

DRUGS (1)
  1. GONAL-F [Suspect]
     Active Substance: FOLLITROPIN
     Indication: Product used for unknown indication
     Dosage: 150 UNSPECIFIED UNITS
     Dates: start: 2021

REACTIONS (1)
  - Oestradiol increased [Unknown]

NARRATIVE: CASE EVENT DATE: 20210101
